FAERS Safety Report 8056742-2 (Version None)
Quarter: 2012Q1

REPORT INFORMATION
  Report Type: 
  Country: None (occurrence: None)
  Receive Date: 20120119
  Receipt Date: 20120117
  Transmission Date: 20120608
  Serious: Yes (Hospitalization, Congenital Anomaly)
  Sender: FDA-Public Use
  Company Number: US-GLAXOSMITHKLINE-A0702803A

PATIENT
  Sex: Male
  Weight: 2.6 kg

DRUGS (5)
  1. PAXIL [Suspect]
     Indication: DEPRESSION
     Dosage: 20MG PER DAY
     Route: 064
     Dates: start: 20050601, end: 20050901
  2. SUDAFED 12 HOUR [Concomitant]
     Route: 064
  3. MULTI-VITAMINS [Concomitant]
     Route: 064
  4. ZANTAC [Concomitant]
     Route: 064
  5. MARIJUANA [Concomitant]
     Route: 064

REACTIONS (9)
  - CARDIAC DISORDER [None]
  - CONGENITAL TRICUSPID VALVE ATRESIA [None]
  - PULMONARY VALVE STENOSIS [None]
  - VENTRICULAR SEPTAL DEFECT [None]
  - ATRIAL SEPTAL DEFECT [None]
  - FOETAL EXPOSURE DURING PREGNANCY [None]
  - CARDIAC MURMUR [None]
  - MITRAL VALVE INCOMPETENCE [None]
  - PILONIDAL CYST CONGENITAL [None]
